FAERS Safety Report 12964934 (Version 2)
Quarter: 2017Q1

REPORT INFORMATION
  Report Type: Spontaneous
  Country: US (occurrence: US)
  Receive Date: 20161122
  Receipt Date: 20170216
  Transmission Date: 20170428
  Serious: No
  Sender: FDA-Public Use
  Company Number: US-ALLERGAN-1674424US

PATIENT
  Age: 33 Year
  Sex: Female
  Weight: 71.66 kg

DRUGS (1)
  1. KYBELLA [Suspect]
     Active Substance: DEOXYCHOLIC ACID
     Indication: FAT TISSUE INCREASED
     Dosage: 66 MG, SINGLE
     Route: 058
     Dates: start: 20161021, end: 20161021

REACTIONS (3)
  - Application site swelling [Recovered/Resolved]
  - Dry skin [Unknown]
  - Injection site erythema [Recovered/Resolved]

NARRATIVE: CASE EVENT DATE: 20161027
